FAERS Safety Report 9759984 (Version 1)
Quarter: 2013Q4

REPORT INFORMATION
  Report Type: Spontaneous
  Country: US (occurrence: US)
  Receive Date: 20131216
  Receipt Date: 20131216
  Transmission Date: 20140711
  Serious: Yes (Other)
  Sender: FDA-Public Use
  Company Number: US-BAYER-2013-153138

PATIENT
  Age: 23 Year
  Sex: Female
  Weight: 49.89 kg

DRUGS (2)
  1. YASMIN [Suspect]
     Dosage: UNK
     Dates: start: 20070526, end: 20070726
  2. PERCOCET [Concomitant]

REACTIONS (1)
  - Ectopic pregnancy [None]
